FAERS Safety Report 5145885-9 (Version None)
Quarter: 2006Q4

REPORT INFORMATION
  Report Type: 
  Country: None (occurrence: None)
  Receive Date: 20061108
  Receipt Date: 20061102
  Transmission Date: 20070319
  Serious: Yes (Death)
  Sender: FDA-Public Use
  Company Number: US-BAYER-200616262BWH

PATIENT
  Age: 59 Year
  Sex: Male

DRUGS (1)
  1. TRASYLOL [Suspect]
     Indication: AORTIC VALVE REPAIR
     Route: 042

REACTIONS (3)
  - CARDIAC ARREST [None]
  - EMBOLISM [None]
  - GRAFT THROMBOSIS [None]
